FAERS Safety Report 7831785-X (Version None)
Quarter: 2011Q4

REPORT INFORMATION
  Report Type: 
  Country: None (occurrence: None)
  Receive Date: 20111021
  Receipt Date: 20111020
  Transmission Date: 20120403
  Serious: Yes (Other)
  Sender: FDA-Public Use
  Company Number: US-PFIZER INC-2011238212

PATIENT
  Sex: Female
  Weight: 77.098 kg

DRUGS (3)
  1. XALATAN [Suspect]
     Indication: GLAUCOMA
     Dosage: 1GTT IN EACH EYE, UNK
     Route: 047
     Dates: start: 20030101, end: 20110601
  2. LATANOPROST [Suspect]
     Indication: GLAUCOMA
     Dosage: 1 GTT IN EACH EYE, UNK
     Route: 047
     Dates: start: 20110801, end: 20111004
  3. LATANOPROST [Suspect]
     Dosage: 1 GTT IN EACH EYE, UNK
     Route: 047
     Dates: start: 20110601, end: 20110801

REACTIONS (2)
  - INTRAOCULAR PRESSURE INCREASED [None]
  - CATARACT [None]
